FAERS Safety Report 8736672 (Version 2)
Quarter: 2012Q4

REPORT INFORMATION
  Report Type: 
  Country: US (occurrence: US)
  Receive Date: 20120822
  Receipt Date: 20120918
  Transmission Date: 20130627
  Serious: Yes (Other)
  Sender: FDA-Public Use
  Company Number: US-PURDUE-USA-2012-0091562

PATIENT
  Age: 58 Year
  Sex: Male
  Weight: 54.88 kg

DRUGS (2)
  1. OXYCONTIN (NDA 22-272) [Suspect]
     Indication: BACK PAIN
     Dosage: 20 mg, tid
     Route: 048
     Dates: start: 20120718
  2. OXYCONTIN (NDA 22-272) [Suspect]
     Indication: NECK PAIN

REACTIONS (6)
  - Incorrect dose administered [Unknown]
  - Concussion [Unknown]
  - Haematoma [Unknown]
  - Victim of crime [Unknown]
  - Contusion [Unknown]
  - Myalgia [Unknown]
